FAERS Safety Report 6696957-9 (Version None)
Quarter: 2010Q2

REPORT INFORMATION
  Report Type: 
  Country: None (occurrence: None)
  Receive Date: 20100426
  Receipt Date: 20100416
  Transmission Date: 20101027
  Serious: Yes (Other)
  Sender: FDA-Public Use
  Company Number: PHHY2010US20567

PATIENT
  Sex: Female

DRUGS (5)
  1. RECLAST [Suspect]
     Indication: OSTEOPOROSIS
     Dosage: 5 MG
     Route: 042
     Dates: start: 20090501
  2. CALCIUM [Concomitant]
     Dosage: ONE EVERYDAY
     Route: 048
  3. VITAMIN D [Concomitant]
     Dosage: UNK
  4. VITAMIN C [Concomitant]
     Dosage: ONE EVERYDAY
     Route: 048
  5. IBUPROFEN [Concomitant]
     Indication: PAIN
     Dosage: UNK

REACTIONS (7)
  - GAIT DISTURBANCE [None]
  - HYPERKERATOSIS [None]
  - LIMB DISCOMFORT [None]
  - LOOSE TOOTH [None]
  - TOOTH EXTRACTION [None]
  - TOOTH FRACTURE [None]
  - WEIGHT DECREASED [None]
